FAERS Safety Report 8499178-2 (Version None)
Quarter: 2012Q2

REPORT INFORMATION
  Report Type: 
  Country: None (occurrence: None)
  Receive Date: 20120405
  Receipt Date: 20100914
  Transmission Date: 20120825
  Serious: Yes (Disabling)
  Sender: FDA-Public Use
  Company Number: PHHY2010US43425

PATIENT
  Age: 85 Year
  Sex: Female

DRUGS (4)
  1. EVISTA [Suspect]
  2. GABAPENTIN [Concomitant]
  3. PRILOSEC [Concomitant]
  4. RECLAST [Suspect]
     Indication: OSTEOPOROSIS
     Dosage: INFUSION
     Dates: start: 20100104

REACTIONS (3)
  - ARTHRALGIA [None]
  - PARAESTHESIA [None]
  - BONE PAIN [None]
